FAERS Safety Report 11132622 (Version 1)
Quarter: 2015Q2

REPORT INFORMATION
  Report Type: Report from Study
  Country: DE (occurrence: DE)
  Receive Date: 20150522
  Receipt Date: 20150522
  Transmission Date: 20150821
  Serious: Yes (Other)
  Sender: FDA-Public Use
  Company Number: DE-ABBVIE-15P-062-1394850-00

PATIENT
  Sex: Male

DRUGS (1)
  1. DUODOPA [Suspect]
     Active Substance: CARBIDOPA\LEVODOPA
     Indication: PARKINSON^S DISEASE
     Dosage: MD 5.0ML?CRD 6.0ML/H?CRN 6.0 ML/H?ED 3.0ML
     Route: 050
     Dates: start: 20081023

REACTIONS (1)
  - Barrett^s oesophagus [Not Recovered/Not Resolved]
